FAERS Safety Report 6248038-6 (Version None)
Quarter: 2009Q2

REPORT INFORMATION
  Report Type: 
  Country: None (occurrence: None)
  Receive Date: 20090626
  Receipt Date: 20090616
  Transmission Date: 20091009
  Serious: Yes (Death)
  Sender: FDA-Public Use
  Company Number: JP-ABBOTT-09P-163-0572781-00

PATIENT
  Sex: Female
  Weight: 42.4 kg

DRUGS (11)
  1. HUMIRA [Suspect]
     Indication: RHEUMATOID ARTHRITIS
     Route: 058
     Dates: start: 20080910, end: 20090408
  2. PREDNISOLONE [Concomitant]
     Indication: RHEUMATOID ARTHRITIS
     Route: 048
     Dates: start: 20030717, end: 20081202
  3. PREDNISOLONE [Concomitant]
     Route: 048
     Dates: start: 20081203, end: 20090412
  4. DIGESTIVES ENZYMES [Concomitant]
     Indication: PROPHYLAXIS
     Route: 048
     Dates: start: 20000420, end: 20090411
  5. DIGESTIVES ENZYMES [Concomitant]
     Indication: PERITONITIS
  6. LOXOPROFEN SODIUM [Concomitant]
     Indication: RHEUMATOID ARTHRITIS
     Route: 048
     Dates: start: 20000420, end: 20090411
  7. ALFACALCIDOL [Concomitant]
     Indication: PROPHYLAXIS
     Route: 048
     Dates: start: 20000420, end: 20090411
  8. ALFACALCIDOL [Concomitant]
     Indication: PERITONITIS
  9. TELMISARTAN [Concomitant]
     Indication: HYPERTENSION
     Route: 048
     Dates: start: 20060613, end: 20090411
  10. ALENDRONATE SODIUM [Concomitant]
     Indication: PROPHYLAXIS
     Route: 048
     Dates: start: 20071002, end: 20090411
  11. ALENDRONATE SODIUM [Concomitant]
     Indication: PERITONITIS

REACTIONS (7)
  - COLITIS ISCHAEMIC [None]
  - DISSEMINATED INTRAVASCULAR COAGULATION [None]
  - GASTROINTESTINAL HAEMORRHAGE [None]
  - GASTROINTESTINAL NECROSIS [None]
  - LARGE INTESTINE PERFORATION [None]
  - PERITONITIS [None]
  - SEPTIC SHOCK [None]
